FAERS Safety Report 5876764-7 (Version None)
Quarter: 2008Q3

REPORT INFORMATION
  Report Type: 
  Country: None (occurrence: None)
  Receive Date: 20080910
  Receipt Date: 20080908
  Transmission Date: 20090109
  Serious: Yes (Life-Threatening, Hospitalization)
  Sender: FDA-Public Use
  Company Number: DE-BRISTOL-MYERS SQUIBB COMPANY-14327845

PATIENT
  Age: 62 Year
  Sex: Male

DRUGS (4)
  1. PACLITAXEL [Suspect]
     Indication: NON-SMALL CELL LUNG CANCER
  2. CISPLATIN [Suspect]
     Indication: NON-SMALL CELL LUNG CANCER
  3. VINORELBINE [Suspect]
     Indication: NON-SMALL CELL LUNG CANCER
  4. RADIOTHERAPY [Suspect]
     Indication: NON-SMALL CELL LUNG CANCER

REACTIONS (4)
  - CARDIAC FAILURE [None]
  - NEUTROPENIA [None]
  - PLEURAL EFFUSION [None]
  - PNEUMONIA [None]
